FAERS Safety Report 20721098 (Version 2)
Quarter: 2022Q2

REPORT INFORMATION
  Report Type: Report from Study
  Country: JP (occurrence: JP)
  Receive Date: 20220418
  Receipt Date: 20220610
  Transmission Date: 20220720
  Serious: Yes (Hospitalization)
  Sender: FDA-Public Use
  Company Number: JP-BIOGEN-2022BI01114270

PATIENT
  Age: 30 Year
  Sex: Female
  Weight: 45 kg

DRUGS (14)
  1. TECFIDERA [Suspect]
     Active Substance: DIMETHYL FUMARATE
     Indication: Relapsing-remitting multiple sclerosis
     Route: 048
     Dates: start: 20171112, end: 20171201
  2. TECFIDERA [Suspect]
     Active Substance: DIMETHYL FUMARATE
     Route: 048
     Dates: start: 20171202, end: 20181006
  3. TYSABRI [Suspect]
     Active Substance: NATALIZUMAB
     Indication: Relapsing-remitting multiple sclerosis
     Route: 065
     Dates: end: 20171007
  4. TYSABRI [Suspect]
     Active Substance: NATALIZUMAB
     Route: 065
     Dates: start: 20181006
  5. BACLOFEN [Concomitant]
     Active Substance: BACLOFEN
     Indication: Relapsing-remitting multiple sclerosis
     Route: 048
  6. HERBALS [Concomitant]
     Active Substance: HERBALS
     Indication: Relapsing-remitting multiple sclerosis
     Route: 048
  7. SENNOSIDES [Concomitant]
     Active Substance: SENNOSIDES
     Indication: Constipation
     Route: 048
  8. VONOPRAZAN FUMARATE [Concomitant]
     Active Substance: VONOPRAZAN FUMARATE
     Indication: Prophylaxis
     Route: 048
     Dates: start: 20180313, end: 20180319
  9. LANSOPRAZOLE [Concomitant]
     Active Substance: LANSOPRAZOLE
     Indication: Prophylaxis
     Route: 048
     Dates: start: 20180420, end: 20180528
  10. BELSOMRA [Concomitant]
     Active Substance: SUVOREXANT
     Route: 048
     Dates: start: 20180420, end: 20180426
  11. MAGNESIUM OXIDE [Concomitant]
     Active Substance: MAGNESIUM OXIDE
     Indication: Constipation
     Route: 048
     Dates: start: 20180506, end: 20180618
  12. MIYA-BM [Concomitant]
     Active Substance: CLOSTRIDIUM BUTYRICUM SPORES STRAIN M-55
     Indication: Constipation
     Route: 048
     Dates: start: 20180506, end: 20180618
  13. PREDONINE [Concomitant]
     Active Substance: PREDNISOLONE
     Indication: Relapsing-remitting multiple sclerosis
     Route: 048
     Dates: start: 20180520, end: 20180526
  14. PREDONINE [Concomitant]
     Active Substance: PREDNISOLONE
     Route: 048
     Dates: start: 20180527, end: 20180529

REACTIONS (15)
  - Multiple sclerosis relapse [Recovered/Resolved]
  - Flushing [Recovered/Resolved]
  - Nausea [Recovered/Resolved]
  - Insomnia [Not Recovered/Not Resolved]
  - Musculoskeletal stiffness [Recovered/Resolved]
  - Acne [Recovered/Resolved]
  - Muscle spasms [Recovered/Resolved]
  - Fasciitis [Recovered/Resolved]
  - Blepharitis [Recovered/Resolved]
  - Dermatitis contact [Recovered/Resolved]
  - Dry eye [Recovered/Resolved]
  - Stomatitis [Recovered/Resolved]
  - Multiple sclerosis [Unknown]
  - Therapeutic product effect incomplete [Unknown]
  - Product use issue [Unknown]

NARRATIVE: CASE EVENT DATE: 20180116
